FAERS Safety Report 4883670-3 (Version None)
Quarter: 2006Q1

REPORT INFORMATION
  Report Type: 
  Country: None (occurrence: None)
  Receive Date: 20060118
  Receipt Date: 20060105
  Transmission Date: 20060701
  Serious: Yes (Other)
  Sender: FDA-Public Use
  Company Number: US-SANOFI-SYNTHELABO-A03200600133

PATIENT
  Sex: Female
  Weight: 68.03 kg

DRUGS (4)
  1. PLAVIX [Suspect]
     Indication: CAROTID ARTERY INSUFFICIENCY
     Route: 048
     Dates: start: 20040101
  2. ALPRAZOLAM [Concomitant]
     Route: 048
  3. HYDROCHLOROTHIAZIDE [Concomitant]
     Route: 048
     Dates: start: 20050701
  4. KLOR-CON [Concomitant]
     Dosage: UNK
     Route: 048
     Dates: start: 20051101

REACTIONS (4)
  - CONFUSIONAL STATE [None]
  - DELIRIUM [None]
  - GAIT DISTURBANCE [None]
  - SPEECH DISORDER [None]
